FAERS Safety Report 19252813 (Version 2)
Quarter: 2021Q2

REPORT INFORMATION
  Report Type: Other
  Country: US (occurrence: US)
  Receive Date: 20210513
  Receipt Date: 20210521
  Transmission Date: 20210717
  Serious: Yes (Hospitalization)
  Sender: FDA-Public Use
  Company Number: US-ROCHE-2828369

PATIENT
  Age: 76 Year
  Sex: Female
  Weight: 61.74 kg

DRUGS (10)
  1. OCREVUS [Suspect]
     Active Substance: OCRELIZUMAB
     Route: 042
  2. PROTONIX [Concomitant]
     Active Substance: PANTOPRAZOLE SODIUM
  3. ELIQUIS [Concomitant]
     Active Substance: APIXABAN
  4. ZANAFLEX [Concomitant]
     Active Substance: TIZANIDINE HYDROCHLORIDE
  5. COLCRYS [Concomitant]
     Active Substance: COLCHICINE
  6. BACLOFEN. [Concomitant]
     Active Substance: BACLOFEN
  7. OCREVUS [Suspect]
     Active Substance: OCRELIZUMAB
     Indication: PROGRESSIVE MULTIPLE SCLEROSIS
     Dosage: DATE OF TREATMENT: 31/JAN/2019, 15/FEB/2019, 15/AUG/2019, 11/FEB/2020
     Route: 042
     Dates: start: 2019
  8. OCREVUS [Suspect]
     Active Substance: OCRELIZUMAB
     Indication: PRIMARY PROGRESSIVE MULTIPLE SCLEROSIS
     Route: 042
  9. ALBUTEROL. [Concomitant]
     Active Substance: ALBUTEROL
  10. FOSAMAX [Concomitant]
     Active Substance: ALENDRONATE SODIUM

REACTIONS (1)
  - Urinary tract infection [Recovered/Resolved]

NARRATIVE: CASE EVENT DATE: 20210505
